FAERS Safety Report 9286627 (Version 1)
Quarter: 2013Q2

REPORT INFORMATION
  Report Type: Spontaneous
  Country: BB (occurrence: BB)
  Receive Date: 20130513
  Receipt Date: 20130513
  Transmission Date: 20140414
  Serious: Yes (Other)
  Sender: FDA-Public Use
  Company Number: PHHY2013BB046496

PATIENT
  Age: 62 Year
  Sex: Male

DRUGS (9)
  1. PRAVASTATIN [Suspect]
     Indication: MYOCARDIAL ISCHAEMIA
     Dosage: 40 MG DAILY
     Route: 048
  2. SIMVASTATIN [Suspect]
     Indication: MYOCARDIAL ISCHAEMIA
     Dosage: 20 MG, QD
     Route: 048
  3. GLICLAZIDE [Concomitant]
     Indication: TYPE 2 DIABETES MELLITUS
     Dosage: 30 MG, BID
     Route: 048
  4. METFORMIN [Concomitant]
     Indication: TYPE 2 DIABETES MELLITUS
     Dosage: 500 MG, TID
     Route: 048
  5. DILTIAZEM [Concomitant]
     Dosage: 90 MG, UNK
     Route: 048
  6. ATENOLOL [Concomitant]
     Dosage: 5 MG, QD
     Route: 048
  7. RAMIPRIL [Concomitant]
     Dosage: 2.5 MG, QD
     Route: 048
  8. CLOPIDOGREL [Concomitant]
     Dosage: 75 MG, QD
     Route: 048
  9. ASPIRIN [Concomitant]
     Dosage: 150 MG, QD
     Route: 048

REACTIONS (4)
  - Parapsoriasis [Recovered/Resolved]
  - Rash papular [Recovered/Resolved]
  - Rash erythematous [Recovered/Resolved]
  - Dry skin [Recovered/Resolved]
